FAERS Safety Report 9838724 (Version 1)
Quarter: 2013Q4

REPORT INFORMATION
  Report Type: Spontaneous
  Country: US (occurrence: None)
  Receive Date: 20131206
  Receipt Date: 20131206
  Transmission Date: 20140711
  Serious: Yes (Hospitalization)
  Sender: FDA-Public Use
  Company Number: 385772

PATIENT
  Age: 54 Year
  Sex: Female
  Weight: 83 kg

DRUGS (7)
  1. NOVOLOG [Suspect]
     Indication: TYPE 2 DIABETES MELLITUS
     Dosage: SLIDING SCALE, SUBCUTAN.-PUMP
     Route: 058
     Dates: start: 2009
  2. GABAPENTIN (GABAPENTIN) [Concomitant]
  3. AMLODIPINE (AMLODIPINE) [Concomitant]
  4. BENAZEPRIL (BENAZEPRIL) [Concomitant]
  5. ATORVASTATIN (ATORVASTATIN) [Concomitant]
  6. EFFEXOR (VENLAFAXINE HYDROCHLORIDE) UNKNOWN [Concomitant]
  7. PREDNISONE (PREDNISOLONE) [Concomitant]

REACTIONS (2)
  - Product quality issue [None]
  - Blood glucose increased [None]
